FAERS Safety Report 4703631-4 (Version None)
Quarter: 2005Q2

REPORT INFORMATION
  Report Type: 
  Country: None (occurrence: None)
  Receive Date: 20050627
  Receipt Date: 20041025
  Transmission Date: 20051028
  Serious: Yes (Hospitalization)
  Sender: FDA-Public Use
  Company Number: US-JNJFOC-20041000121

PATIENT
  Age: 56 Year
  Sex: Female

DRUGS (10)
  1. FENTANYL [Suspect]
     Indication: PAIN
     Dosage: SEE IMAGE
     Route: 062
  2. . [Suspect]
  3. . [Suspect]
  4. SYNTHROID (LEVOTHYROXINE SODIUM) TABLETS [Concomitant]
  5. EFFEXOR XR [Concomitant]
  6. NEURONTIN [Concomitant]
  7. PROTONIX (PANTOPRAZOLE) TABLETS [Concomitant]
  8. TRAZODONE (TRAZODONE) [Concomitant]
  9. VIOXX [Concomitant]
  10. OXYCODONE HCL [Concomitant]

REACTIONS (1)
  - RESPIRATORY DEPRESSION [None]
